FAERS Safety Report 11028039 (Version 2)
Quarter: 2015Q2

REPORT INFORMATION
  Report Type: Spontaneous
  Country: US (occurrence: US)
  Receive Date: 20150414
  Receipt Date: 20150519
  Transmission Date: 20150821
  Serious: Yes (Hospitalization, Congenital Anomaly, Other)
  Sender: FDA-Public Use
  Company Number: US-GLAXOSMITHKLINE INC.-US2015GSK050056

PATIENT
  Sex: Male

DRUGS (1)
  1. ZOFRAN [Suspect]
     Active Substance: ONDANSETRON HYDROCHLORIDE
     Route: 064

REACTIONS (18)
  - Diarrhoea [Unknown]
  - Irritability [Unknown]
  - Failure to thrive [Unknown]
  - Medical diet [Unknown]
  - Pain [Unknown]
  - Congenital anomaly [Unknown]
  - Adverse event [Unknown]
  - Vomiting [Unknown]
  - Stress [Unknown]
  - Developmental delay [Unknown]
  - Anorectal discomfort [Unknown]
  - Infantile spitting up [Unknown]
  - Eosinophilic oesophagitis [Not Recovered/Not Resolved]
  - Dehydration [Unknown]
  - Endoscopy [Unknown]
  - Foetal exposure during pregnancy [Unknown]
  - Crying [Unknown]
  - Hospitalisation [Unknown]
